FAERS Safety Report 23363571 (Version 1)
Quarter: 2024Q1

REPORT INFORMATION
  Report Type: Spontaneous
  Country: US (occurrence: US)
  Receive Date: 20240103
  Receipt Date: 20240103
  Transmission Date: 20240409
  Serious: No
  Sender: FDA-Public Use
  Company Number: US-009507513-2312USA008393

PATIENT
  Age: 18 Year
  Sex: Female

DRUGS (1)
  1. TEMODAR [Suspect]
     Active Substance: TEMOZOLOMIDE
     Indication: ACTH-producing pituitary tumour
     Dosage: 150 SQUARE METER PER DAY, CYCLES OF FIVE DAYS/MONTH FOR 14 MONTHS

REACTIONS (1)
  - Product use in unapproved indication [Unknown]
